FAERS Safety Report 5457313-4 (Version None)
Quarter: 2007Q3

REPORT INFORMATION
  Report Type: 
  Country: None (occurrence: None)
  Receive Date: 20070918
  Receipt Date: 20070220
  Transmission Date: 20080115
  Serious: No
  Sender: FDA-Public Use
  Company Number: US-ASTRAZENECA-2007UW03327

PATIENT
  Age: 58 Year
  Sex: Female
  Weight: 73.9 kg

DRUGS (2)
  1. SEROQUEL [Suspect]
     Indication: DEPRESSION
     Dates: start: 20060101
  2. ALBUTEROL [Concomitant]
     Route: 055

REACTIONS (2)
  - ASTHMA [None]
  - BRONCHITIS [None]
